FAERS Safety Report 12499984 (Version 1)
Quarter: 2016Q2

REPORT INFORMATION
  Report Type: Spontaneous
  Country: US (occurrence: None)
  Receive Date: 20160624
  Receipt Date: 20160624
  Transmission Date: 20160815
  Serious: Yes (Hospitalization)
  Sender: FDA-Public Use
  Company Number: None

PATIENT
  Age: 57 Year
  Sex: Female
  Weight: 59.88 kg

DRUGS (3)
  1. MORPHINE [Concomitant]
     Active Substance: MORPHINE
  2. PASIREOTIDE, 60MG NOVARTIS [Suspect]
     Active Substance: PASIREOTIDE
     Indication: POLYCYSTIC LIVER DISEASE
     Dosage: 60 MG EVERY 28 DAYS INTRAMUSCULAR
     Route: 030
     Dates: start: 20140211, end: 20151222
  3. SPIRONOLACTONE (ALDACTONE) [Concomitant]

REACTIONS (6)
  - Weight decreased [None]
  - Thrombosis [None]
  - Deep vein thrombosis [None]
  - Oedema [None]
  - Abasia [None]
  - Asthenia [None]

NARRATIVE: CASE EVENT DATE: 20160505
